FAERS Safety Report 21773803 (Version 1)
Quarter: 2022Q4

REPORT INFORMATION
  Report Type: Spontaneous
  Country: US (occurrence: None)
  Receive Date: 20221222
  Receipt Date: 20221222
  Transmission Date: 20230112
  Serious: Yes (Death)
  Sender: FDA-Public Use
  Company Number: None

PATIENT
  Sex: Male

DRUGS (2)
  1. DROXIDOPA [Suspect]
     Active Substance: DROXIDOPA
     Indication: Product used for unknown indication
     Dosage: 100 MG ORAL 300 MG: TAKE 1 CAPSULE BY MOUTH THREE TIMES DAILY, TAKE LAST DOSE AT LEAST 3 HOURS BEFOR
     Route: 048
     Dates: start: 20220802
  2. DROXIDOPA [Suspect]
     Active Substance: DROXIDOPA
     Indication: Product used for unknown indication
     Dosage: 300 MG: TAKE 1 CAPSULE BY MOUTH THREE TIMES DAILY, TAKE LAST DOSE AT LEAST 3 HOURS BEFORE BEDTIME
     Route: 048
     Dates: start: 20210902

REACTIONS (1)
  - Death [None]
